FAERS Safety Report 8097107-7 (Version None)
Quarter: 2012Q1

REPORT INFORMATION
  Report Type: 
  Country: None (occurrence: None)
  Receive Date: 20120129
  Receipt Date: 20111121
  Transmission Date: 20120608
  Serious: No
  Sender: FDA-Public Use
  Company Number: US-ABBOTT-11P-163-0876537-00

PATIENT
  Age: 50 Year
  Sex: Female

DRUGS (2)
  1. PRILOSEC OTC [Concomitant]
     Indication: GASTROOESOPHAGEAL REFLUX DISEASE
  2. HUMIRA [Suspect]
     Indication: PSORIASIS
     Dates: start: 20110901

REACTIONS (4)
  - RASH PAPULAR [None]
  - PSORIASIS [None]
  - DERMATITIS CONTACT [None]
  - PRURITUS [None]
